FAERS Safety Report 4515851-2 (Version None)
Quarter: 2004Q4

REPORT INFORMATION
  Report Type: 
  Country: None (occurrence: None)
  Receive Date: 20041001
  Receipt Date: 20031107
  Transmission Date: 20050328
  Serious: Yes (Hospitalization)
  Sender: FDA-Public Use
  Company Number: TPA2003A01490

PATIENT
  Sex: 0

DRUGS (1)
  1. ACTOS [Suspect]
     Indication: DIABETES MELLITUS NON-INSULIN-DEPENDENT
     Dosage: 30 MG , 1 IN 1 D, PER ORAL
     Route: 048

REACTIONS (3)
  - CARDIAC FAILURE [None]
  - GENERALISED OEDEMA [None]
  - WEIGHT INCREASED [None]
